FAERS Safety Report 6797418 (Version 4)
Quarter: 2013Q4

REPORT INFORMATION
  Report Type: Spontaneous
  Country: US (occurrence: None)
  Receive Date: 20081016
  Receipt Date: 20131024
  Transmission Date: 20140711
  Serious: Yes (Hospitalization)
  Sender: FDA-Public Use
  Company Number: 2008S1009840

PATIENT
  Age: 71 Year
  Sex: Female

DRUGS (4)
  1. SODIUM PHOSPHATE, DIBASIC\SODIUM PHOSPHATE, MONOBASIC, ANHYDROUS [Suspect]
     Indication: COLONOSCOPY
     Dosage: TOTAL
     Route: 048
     Dates: start: 20060613, end: 20060613
  2. HYDROCHLOROTHIAZIDE [Concomitant]
  3. LISINOPRIL [Concomitant]
  4. BISACODYL [Concomitant]

REACTIONS (7)
  - Influenza like illness [None]
  - Haemodialysis [None]
  - Renal transplant [None]
  - Renal failure [None]
  - Fatigue [None]
  - Influenza [None]
  - Dialysis [None]
